FAERS Safety Report 10949390 (Version 1)
Quarter: 2015Q1

REPORT INFORMATION
  Report Type: Spontaneous
  Country: FR (occurrence: FR)
  Receive Date: 20150324
  Receipt Date: 20150324
  Transmission Date: 20150721
  Serious: Yes (Hospitalization, Other)
  Sender: FDA-Public Use
  Company Number: FR-PFIZER INC-2015068949

PATIENT
  Age: 35 Year
  Sex: Female
  Weight: 54 kg

DRUGS (2)
  1. ZOLOFT [Suspect]
     Active Substance: SERTRALINE HYDROCHLORIDE
     Dosage: 50 MG, UNK
     Dates: start: 20141106, end: 20141224
  2. ZOLOFT [Suspect]
     Active Substance: SERTRALINE HYDROCHLORIDE
     Indication: DEPRESSION
     Dosage: 50 MG, UNK
     Dates: start: 20140815, end: 201410

REACTIONS (26)
  - Drug withdrawal syndrome [Unknown]
  - Cervical radiculopathy [Unknown]
  - Pain [Unknown]
  - Drug withdrawal headache [Unknown]
  - Pruritus [Unknown]
  - Palpitations [Unknown]
  - Dyspareunia [Unknown]
  - Muscle contracture [Unknown]
  - Crying [Unknown]
  - Intervertebral disc disorder [Unknown]
  - Muscle contractions involuntary [Unknown]
  - Supraventricular extrasystoles [Unknown]
  - Suicidal ideation [Unknown]
  - General physical health deterioration [Unknown]
  - Malaise [Unknown]
  - Feeling abnormal [Unknown]
  - Aphthous stomatitis [Unknown]
  - Rash [Unknown]
  - Peripheral vascular disorder [Unknown]
  - Hot flush [Unknown]
  - Logorrhoea [Unknown]
  - Weight decreased [Unknown]
  - Depressed mood [Unknown]
  - Vertigo [Unknown]
  - Sleep disorder [Unknown]
  - Anxiety [Unknown]

NARRATIVE: CASE EVENT DATE: 2014
